FAERS Safety Report 15279640 (Version 6)
Quarter: 2022Q1

REPORT INFORMATION
  Report Type: Spontaneous
  Country: US (occurrence: US)
  Receive Date: 20180815
  Receipt Date: 20220106
  Transmission Date: 20220424
  Serious: No
  Sender: FDA-Public Use
  Company Number: US-PFIZER INC-2018310959

PATIENT
  Age: 51 Year
  Sex: Female
  Weight: 95.238 kg

DRUGS (1)
  1. LYRICA [Suspect]
     Active Substance: PREGABALIN
     Indication: Multiple sclerosis
     Dosage: 300 MG, 4X/DAY (1 CAP PO (PER ORAL) QID (FOUR TIMES A DAY)
     Route: 048

REACTIONS (4)
  - Gait disturbance [Unknown]
  - Pain [Unknown]
  - Prescribed overdose [Unknown]
  - Off label use [Unknown]
